FAERS Safety Report 15742311 (Version 7)
Quarter: 2022Q1

REPORT INFORMATION
  Report Type: Spontaneous
  Country: SI (occurrence: SI)
  Receive Date: 20181219
  Receipt Date: 20220117
  Transmission Date: 20220423
  Serious: Yes (Hospitalization, Other)
  Sender: FDA-Public Use
  Company Number: SI-NOVPHSZ-PHHY2018SI169596

PATIENT
  Age: 68 Year
  Sex: Male

DRUGS (14)
  1. PANTOPRAZOLE [Suspect]
     Active Substance: PANTOPRAZOLE
     Dosage: 40 MG, UNK
     Route: 065
  2. AMLODIPINE BESYLATE [Suspect]
     Active Substance: AMLODIPINE BESYLATE
     Dosage: 1 DF, QD
     Route: 065
  3. RAMIPRIL [Suspect]
     Active Substance: RAMIPRIL
     Dosage: UNK
     Route: 048
  4. BISOPROLOL FUMARATE [Suspect]
     Active Substance: BISOPROLOL FUMARATE
     Dosage: 5 MG, QD (IN THE EVENING)
     Route: 065
  5. ASPIRIN [Suspect]
     Active Substance: ASPIRIN
     Dosage: 1 DF, QD (AT NOON)
     Route: 048
  6. IVABRADINE HYDROCHLORIDE [Suspect]
     Active Substance: IVABRADINE HYDROCHLORIDE
     Dosage: 5 MG, BID
     Route: 065
  7. TRIMETAZIDINE DIHYDROCHLORIDE [Suspect]
     Active Substance: TRIMETAZIDINE DIHYDROCHLORIDE
     Dosage: 2 DF, UNK
     Route: 065
  8. ALDACTONE [Suspect]
     Active Substance: SPIRONOLACTONE
     Dosage: UNK
     Route: 065
  9. ALLOPURINOL [Suspect]
     Active Substance: ALLOPURINOL
     Dosage: 100 MG, BID
     Route: 065
  10. FUROSEMIDE [Suspect]
     Active Substance: FUROSEMIDE
     Dosage: 1 DF, QD (IN THE MORNING)
     Route: 065
  11. ROSUVASTATIN [Suspect]
     Active Substance: ROSUVASTATIN
     Dosage: 20 MG, QD (IN THE EVENING)
     Route: 048
  12. CALCIUM PHOSPHATE\FOLIC ACID [Suspect]
     Active Substance: CALCIUM PHOSPHATE\FOLIC ACID
     Dosage: 5 MG, UNK
     Route: 065
  13. TICAGRELOR [Suspect]
     Active Substance: TICAGRELOR
     Dosage: 2 DF, QD
     Route: 048
  14. NITRO-DUR [Suspect]
     Active Substance: NITROGLYCERIN
     Dosage: UNK UNK, QD (DURING THE DAY)
     Route: 065

REACTIONS (34)
  - Blood chloride increased [Unknown]
  - Left ventricular enlargement [Unknown]
  - Blood glucose increased [Unknown]
  - Cardiac failure congestive [Unknown]
  - Type 2 diabetes mellitus [Unknown]
  - Anaemia [Unknown]
  - Diastolic dysfunction [Unknown]
  - Base excess decreased [Unknown]
  - PCO2 decreased [Unknown]
  - Left ventricular hypertrophy [Unknown]
  - Blood urea increased [Unknown]
  - Haematocrit decreased [Unknown]
  - Blood creatinine increased [Unknown]
  - Hyperlipidaemia [Unknown]
  - Ischaemic cardiomyopathy [Unknown]
  - Cardiac failure [Recovered/Resolved]
  - Mean cell haemoglobin decreased [Unknown]
  - Blood lactic acid increased [Unknown]
  - Brain natriuretic peptide increased [Unknown]
  - Angina pectoris [Unknown]
  - Blood potassium increased [Unknown]
  - Dyspnoea [Unknown]
  - PO2 decreased [Unknown]
  - Troponin increased [Unknown]
  - Hypertension [Unknown]
  - Tricuspid valve incompetence [Unknown]
  - Arteriosclerosis coronary artery [Unknown]
  - Blood pressure increased [Unknown]
  - International normalised ratio decreased [Unknown]
  - Red blood cell count decreased [Unknown]
  - Acute myocardial infarction [Unknown]
  - Blood bicarbonate decreased [Unknown]
  - Chronic kidney disease [Unknown]
  - Chest pain [Unknown]

NARRATIVE: CASE EVENT DATE: 20170601
